FAERS Safety Report 19574432 (Version 1)
Quarter: 2021Q3

REPORT INFORMATION
  Report Type: Spontaneous
  Country: CZ (occurrence: CZ)
  Receive Date: 20210719
  Receipt Date: 20210719
  Transmission Date: 20211014
  Serious: Yes (Other)
  Sender: FDA-Public Use
  Company Number: CZ-TEVA-2021-CZ-1932601

PATIENT
  Sex: Female

DRUGS (5)
  1. PREGABALIN. [Suspect]
     Active Substance: PREGABALIN
     Dosage: 150 MG / DAY
     Route: 065
  2. ARIPIPRAZOLE. [Suspect]
     Active Substance: ARIPIPRAZOLE
     Dosage: 15 MG / DAY
     Route: 065
  3. OLANZAPINE. [Suspect]
     Active Substance: OLANZAPINE
     Route: 065
  4. AGOMELATINE [Suspect]
     Active Substance: AGOMELATINE
     Dosage: DOSES 25?50 MG
     Route: 065
  5. QUETIAPINE. [Suspect]
     Active Substance: QUETIAPINE
     Dosage: QUETIAPINE PROLONG 400 MG
     Route: 065

REACTIONS (14)
  - Schizoaffective disorder [Recovered/Resolved]
  - Somnolence [Recovered/Resolved]
  - Accelerated hypertension [Recovered/Resolved]
  - Type 2 diabetes mellitus [Recovering/Resolving]
  - Dysphoria [Recovered/Resolved]
  - Drug ineffective [Unknown]
  - Euphoric mood [Recovered/Resolved]
  - Weight increased [Recovering/Resolving]
  - Central obesity [Recovering/Resolving]
  - Asthenia [Recovered/Resolved]
  - Therapeutic product effect incomplete [Unknown]
  - Akathisia [Recovered/Resolved]
  - Irritability [Recovered/Resolved]
  - Sleep deficit [Recovered/Resolved]
